FAERS Safety Report 19117359 (Version 2)
Quarter: 2021Q2

REPORT INFORMATION
  Report Type: Spontaneous
  Country: CA (occurrence: CA)
  Receive Date: 20210409
  Receipt Date: 20210427
  Transmission Date: 20210717
  Serious: Yes (Other)
  Sender: FDA-Public Use
  Company Number: CA-BAYER-2021-117903

PATIENT
  Age: 23 Year
  Sex: Female

DRUGS (1)
  1. MIRENA [Suspect]
     Active Substance: LEVONORGESTREL
     Dosage: 20 ?G PER DAY CONTINUOUSLY
     Route: 015

REACTIONS (24)
  - Headache [None]
  - Nausea [None]
  - Pruritus [None]
  - Self esteem decreased [None]
  - Back pain [None]
  - Chest discomfort [None]
  - Chest pain [None]
  - Fatigue [None]
  - Gastrooesophageal reflux disease [None]
  - Hyperacusis [None]
  - Loss of libido [None]
  - Weight increased [None]
  - Acne [None]
  - Breast pain [None]
  - Taste disorder [None]
  - Libido decreased [None]
  - Stress [None]
  - Amenorrhoea [None]
  - Parosmia [None]
  - Abdominal pain [None]
  - Affect lability [None]
  - Decreased appetite [None]
  - Dyspareunia [None]
  - Insomnia [None]
